FAERS Safety Report 5356519-2 (Version None)
Quarter: 2007Q2

REPORT INFORMATION
  Report Type: 
  Country: None (occurrence: None)
  Receive Date: 20070530
  Receipt Date: 20061113
  Transmission Date: 20071010
  Serious: Yes (Hospitalization)
  Sender: FDA-Public Use
  Company Number: US200608006117

PATIENT
  Age: 37 Year
  Sex: Female
  Weight: 76.6 kg

DRUGS (6)
  1. ZYPREXA [Suspect]
     Indication: DEPRESSION
     Dates: start: 20010101
  2. CELEXA [Concomitant]
  3. BUPROPION HCL [Concomitant]
  4. ARIPIPRAZOLE [Concomitant]
  5. RISPERIDONE [Concomitant]
  6. GEODON [Concomitant]

REACTIONS (4)
  - BLOOD CHOLESTEROL INCREASED [None]
  - BLOOD GLUCOSE INCREASED [None]
  - BLOOD TRIGLYCERIDES INCREASED [None]
  - DIABETES MELLITUS [None]
